FAERS Safety Report 14659503 (Version 3)
Quarter: 2019Q4

REPORT INFORMATION
  Report Type: Report from Study
  Country: JP (occurrence: JP)
  Receive Date: 20180320
  Receipt Date: 20191220
  Transmission Date: 20200122
  Serious: Yes (Death, Other)
  Sender: FDA-Public Use
  Company Number: JP-009507513-1803JPN001655J

PATIENT
  Age: 90 Year
  Sex: Male
  Weight: 38 kg

DRUGS (15)
  1. ZINPLAVA [Suspect]
     Active Substance: BEZLOTOXUMAB
     Indication: INFECTION PROPHYLAXIS
     Dosage: 400 MILLIGRAM, QD
     Route: 041
     Dates: start: 20180210
  2. VANCOMYCIN [Suspect]
     Active Substance: VANCOMYCIN
     Dosage: 0.125 GRAM, QD
     Route: 048
     Dates: start: 20180207, end: 20180214
  3. MIDODRINE HYDROCHLORIDE. [Concomitant]
     Active Substance: MIDODRINE HYDROCHLORIDE
     Indication: HYPOTENSION
     Dosage: 2 MILLIGRAM, BID
     Route: 048
     Dates: start: 20170815
  4. FUROSEMIDE. [Concomitant]
     Active Substance: FUROSEMIDE
     Indication: CARDIAC FAILURE CHRONIC
     Dosage: 20 MILLIGRAM, QD
     Route: 048
     Dates: start: 20170628
  5. MONTELUKAST [Concomitant]
     Active Substance: MONTELUKAST SODIUM
     Indication: ASTHMA
     Dosage: 10 MILLIGRAM, QD
     Route: 048
     Dates: start: 20170626
  6. VANCOMYCIN [Suspect]
     Active Substance: VANCOMYCIN
     Indication: CLOSTRIDIUM DIFFICILE INFECTION
     Dosage: 0.25 GRAM, QID
     Route: 048
     Dates: start: 20180117, end: 20180124
  7. VANCOMYCIN [Suspect]
     Active Substance: VANCOMYCIN
     Dosage: 0.125 GRAM, BID
     Route: 048
     Dates: start: 20180131, end: 20180207
  8. SILODOSIN. [Concomitant]
     Active Substance: SILODOSIN
     Indication: BENIGN PROSTATIC HYPERPLASIA
     Dosage: 4 MILLIGRAM, BID
     Route: 048
  9. VANCOMYCIN [Suspect]
     Active Substance: VANCOMYCIN
     Dosage: 0.25 GRAM, BID
     Route: 048
     Dates: start: 20180124, end: 20180131
  10. VANCOMYCIN [Suspect]
     Active Substance: VANCOMYCIN
     Dosage: 0.125 GRAM
     Route: 048
     Dates: start: 20180214, end: 20180225
  11. APIXABAN [Concomitant]
     Active Substance: APIXABAN
     Indication: ATRIAL FIBRILLATION
     Dosage: 2.5 MILLIGRAM, BID
     Route: 048
     Dates: start: 20180203
  12. SOLDEM 3A [Concomitant]
     Active Substance: CARBOHYDRATES\POTASSIUM CHLORIDE\SODIUM CHLORIDE\SODIUM LACTATE
     Indication: INFLUENZA
     Dosage: 200 MILLILITER, QD
     Route: 041
     Dates: start: 20180128, end: 20180205
  13. SODIUM CHLORIDE. [Concomitant]
     Active Substance: SODIUM CHLORIDE
     Indication: HYPONATRAEMIA
     Dosage: 1 GRAM, BID
     Route: 048
     Dates: start: 20170829
  14. VANCOMYCIN [Suspect]
     Active Substance: VANCOMYCIN
     Dosage: 0.125 GRAM, QW
     Route: 048
     Dates: start: 20180225
  15. BIOFERMIN [Concomitant]
     Active Substance: DIETARY SUPPLEMENT\PROBIOTICS
     Indication: CLOSTRIDIUM DIFFICILE INFECTION
     Dosage: 3 GRAM, TID
     Route: 048
     Dates: start: 20171016

REACTIONS (2)
  - Pneumonia aspiration [Fatal]
  - Overdose [Unknown]

NARRATIVE: CASE EVENT DATE: 2018
